FAERS Safety Report 24332732 (Version 1)
Quarter: 2024Q3

REPORT INFORMATION
  Report Type: Spontaneous
  Country: US (occurrence: None)
  Receive Date: 20240917
  Receipt Date: 20240917
  Transmission Date: 20241016
  Serious: Yes (Hospitalization)
  Sender: Public
  Company Number: None

PATIENT
  Sex: Female

DRUGS (1)
  1. OXBRYTA [Suspect]
     Active Substance: VOXELOTOR
     Indication: Sickle cell disease
     Dosage: OTHER QUANTITY : 3 TABLETS;?FREQUENCY : DAILY;?
     Route: 048
     Dates: start: 202209

REACTIONS (1)
  - Sickle cell anaemia with crisis [None]
